FAERS Safety Report 5176802-3 (Version None)
Quarter: 2006Q4

REPORT INFORMATION
  Report Type: 
  Country: None (occurrence: None)
  Receive Date: 20061218
  Receipt Date: 20061030
  Transmission Date: 20070319
  Serious: Yes (Other)
  Sender: FDA-Public Use
  Company Number: PHNU2006DE03574

PATIENT
  Sex: Female

DRUGS (1)
  1. COMBIPATCH [Suspect]
     Route: 062

REACTIONS (5)
  - BURNS SECOND DEGREE [None]
  - BURNS THIRD DEGREE [None]
  - IMPAIRED HEALING [None]
  - MASS EXCISION [None]
  - SKIN NECROSIS [None]
